FAERS Safety Report 16743345 (Version 1)
Quarter: 2019Q3

REPORT INFORMATION
  Report Type: Spontaneous
  Country: GB (occurrence: GB)
  Receive Date: 20190827
  Receipt Date: 20190827
  Transmission Date: 20191005
  Serious: Yes (Other)
  Sender: FDA-Public Use
  Company Number: GB-JNJFOC-20190823460

PATIENT
  Age: 66 Year
  Sex: Male
  Weight: 83.7 kg

DRUGS (2)
  1. BENADRYL ONE A DAY RELIEF [Suspect]
     Active Substance: CETIRIZINE HYDROCHLORIDE
     Indication: SEASONAL ALLERGY
     Route: 048
     Dates: start: 20190711, end: 20190801
  2. PIRITEZE [Concomitant]
     Active Substance: CETIRIZINE HYDROCHLORIDE
     Indication: PRODUCT USED FOR UNKNOWN INDICATION
     Route: 065

REACTIONS (2)
  - Vision blurred [Not Recovered/Not Resolved]
  - Abnormal sensation in eye [Unknown]

NARRATIVE: CASE EVENT DATE: 20190715
